FAERS Safety Report 21173315 (Version 2)
Quarter: 2022Q3

REPORT INFORMATION
  Report Type: Spontaneous
  Country: US (occurrence: US)
  Receive Date: 20220804
  Receipt Date: 20220819
  Transmission Date: 20221027
  Serious: Yes (Other)
  Sender: FDA-Public Use
  Company Number: US-TEVA-2022-US-2059961

PATIENT
  Age: 64 Year
  Sex: Female

DRUGS (4)
  1. MODAFINIL [Suspect]
     Active Substance: MODAFINIL
     Indication: Narcolepsy
     Dosage: UP TITRATED TO 600 MG
     Route: 065
     Dates: start: 2008, end: 2013
  2. ARMODAFINIL [Suspect]
     Active Substance: ARMODAFINIL
     Indication: Narcolepsy
     Route: 065
     Dates: start: 2013, end: 2014
  3. METHYLPHENIDATE [Suspect]
     Active Substance: METHYLPHENIDATE
     Indication: Narcolepsy
     Route: 065
     Dates: start: 2014, end: 2014
  4. VENLAFAXINE [Concomitant]
     Active Substance: VENLAFAXINE HYDROCHLORIDE
     Indication: Waxy flexibility
     Route: 065
     Dates: start: 2008, end: 2014

REACTIONS (4)
  - Insomnia [Recovering/Resolving]
  - Cognitive disorder [Recovering/Resolving]
  - Amnesia [Recovering/Resolving]
  - Drug ineffective [Unknown]

NARRATIVE: CASE EVENT DATE: 20120101
